FAERS Safety Report 15103550 (Version 1)
Quarter: 2018Q3

REPORT INFORMATION
  Report Type: Spontaneous
  Country: US (occurrence: US)
  Receive Date: 20180703
  Receipt Date: 20180703
  Transmission Date: 20181010
  Serious: Yes (Other)
  Sender: FDA-Public Use
  Company Number: US-SA-2018SA172509

PATIENT
  Age: 50 Year
  Sex: Female

DRUGS (7)
  1. AUBAGIO [Suspect]
     Active Substance: TERIFLUNOMIDE
     Indication: MULTIPLE SCLEROSIS
     Dosage: 14 MG, QD
     Route: 048
     Dates: start: 20180316, end: 20180621
  2. NUVIGIL [Concomitant]
     Active Substance: ARMODAFINIL
  3. ATORVASTATIN [Concomitant]
     Active Substance: ATORVASTATIN
  4. ROPINIROLE. [Concomitant]
     Active Substance: ROPINIROLE
  5. LOSARTAN. [Concomitant]
     Active Substance: LOSARTAN
  6. PANTOPRAZOLE [Concomitant]
     Active Substance: PANTOPRAZOLE
  7. CLOPIDOGREL [Concomitant]
     Active Substance: CLOPIDOGREL BISULFATE

REACTIONS (2)
  - Incision site oedema [Unknown]
  - Seroma [Unknown]

NARRATIVE: CASE EVENT DATE: 20180314
